FAERS Safety Report 15530596 (Version 1)
Quarter: 2018Q4

REPORT INFORMATION
  Report Type: Report from Study
  Country: DE (occurrence: DE)
  Receive Date: 20181018
  Receipt Date: 20181018
  Transmission Date: 20190205
  Serious: Yes (Hospitalization, Other)
  Sender: FDA-Public Use
  Company Number: PHHY2018DE129180

PATIENT
  Age: 65 Year
  Sex: Male

DRUGS (1)
  1. GILENYA [Suspect]
     Active Substance: FINGOLIMOD HYDROCHLORIDE
     Indication: MULTIPLE SCLEROSIS
     Dosage: 0.5 MG, UNK
     Route: 048
     Dates: start: 20141117

REACTIONS (24)
  - Acute disseminated encephalomyelitis [Recovered/Resolved]
  - Pelvic cyst [Unknown]
  - Ventricular extrasystoles [Unknown]
  - Eosinophil count decreased [Unknown]
  - Benign prostatic hyperplasia [Recovered/Resolved]
  - Urinary incontinence [Recovered/Resolved]
  - Pulmonary congestion [Unknown]
  - Abdominal pain [Unknown]
  - Neutrophil count increased [Unknown]
  - Gastroenteritis [Recovered/Resolved]
  - Acute kidney injury [Recovered/Resolved]
  - Body temperature increased [Recovered/Resolved]
  - Hemiparesis [Unknown]
  - Dysmetria [Unknown]
  - Musculoskeletal stiffness [Recovered/Resolved]
  - Phonophobia [Unknown]
  - Lymphocyte count decreased [Unknown]
  - Flatulence [Unknown]
  - Hypoaesthesia [Unknown]
  - Dysarthria [Unknown]
  - Monocyte count increased [Unknown]
  - Abdominal tenderness [Recovered/Resolved]
  - Diarrhoea [Recovered/Resolved]
  - Myositis [Unknown]

NARRATIVE: CASE EVENT DATE: 20180923
